FAERS Safety Report 19086141 (Version 1)
Quarter: 2021Q2

REPORT INFORMATION
  Report Type: Spontaneous
  Country: US (occurrence: US)
  Receive Date: 20210402
  Receipt Date: 20210402
  Transmission Date: 20210717
  Serious: No
  Sender: FDA-Public Use
  Company Number: US-ALLERGAN-2009927US

PATIENT
  Sex: Male

DRUGS (1)
  1. OXYTROL [Suspect]
     Active Substance: OXYBUTYNIN
     Indication: HYPERTONIC BLADDER
     Route: 061

REACTIONS (3)
  - Application site erythema [Unknown]
  - Application site irritation [Unknown]
  - Therapeutic response decreased [Unknown]
